FAERS Safety Report 19439207 (Version 1)
Quarter: 2021Q2

REPORT INFORMATION
  Report Type: Spontaneous
  Country: CA (occurrence: CA)
  Receive Date: 20210618
  Receipt Date: 20210618
  Transmission Date: 20210717
  Serious: Yes (Hospitalization)
  Sender: FDA-Public Use
  Company Number: CA-PFIZER INC-2020231963

PATIENT
  Age: 63 Year
  Sex: Female

DRUGS (8)
  1. IPILIMUMAB [Concomitant]
     Active Substance: IPILIMUMAB
     Indication: METASTATIC MALIGNANT MELANOMA
     Dosage: 1 MG/KG, CYCLIC (THREE CYCLES)
  2. NIVOLUMAB [Concomitant]
     Active Substance: NIVOLUMAB
     Indication: METASTATIC MALIGNANT MELANOMA
     Dosage: 3 MG/KG, CYCLIC (THREE CYCLES)
  3. MYCOPHENOLATE MOFETIL. [Suspect]
     Active Substance: MYCOPHENOLATE MOFETIL
     Indication: MALIGNANT MELANOMA
     Dosage: 750 MG, 2X/DAY, ON DAY 18
     Route: 042
  4. PREDNISONE. [Suspect]
     Active Substance: PREDNISONE
     Indication: HEPATITIS
     Dosage: 80 MG, DAILY
     Route: 048
  5. SOLU?MEDROL [Suspect]
     Active Substance: METHYLPREDNISOLONE SODIUM SUCCINATE
     Indication: MALIGNANT MELANOMA
  6. MYCOPHENOLATE MOFETIL. [Suspect]
     Active Substance: MYCOPHENOLATE MOFETIL
     Indication: HEPATITIS
     Dosage: 500 MG, 2X/DAY
     Route: 042
  7. PREDNISONE. [Suspect]
     Active Substance: PREDNISONE
     Indication: MALIGNANT MELANOMA
  8. SOLU?MEDROL [Suspect]
     Active Substance: METHYLPREDNISOLONE SODIUM SUCCINATE
     Indication: HEPATITIS
     Dosage: 150 MG, DAILY
     Route: 042

REACTIONS (4)
  - Off label use [Unknown]
  - Drug ineffective for unapproved indication [Unknown]
  - Product use in unapproved indication [Unknown]
  - Disease progression [Unknown]
